FAERS Safety Report 13330655 (Version 3)
Quarter: 2017Q2

REPORT INFORMATION
  Report Type: Report from Study
  Country: US (occurrence: US)
  Receive Date: 20170313
  Receipt Date: 20170424
  Transmission Date: 20170830
  Serious: No
  Sender: FDA-Public Use
  Company Number: US-009507513-1702USA009674

PATIENT
  Age: 77 Year
  Sex: Male

DRUGS (2)
  1. PEMBROLIZUMAB. [Suspect]
     Active Substance: PEMBROLIZUMAB
     Indication: METASTASES TO LUNG
  2. PEMBROLIZUMAB. [Suspect]
     Active Substance: PEMBROLIZUMAB
     Indication: THROAT CANCER
     Dosage: UNK, EVERY 3 WEEKS
     Route: 042
     Dates: start: 20161207

REACTIONS (6)
  - Thyroid disorder [Unknown]
  - Arthritis [Unknown]
  - Arteriosclerosis coronary artery [Unknown]
  - Gynaecomastia [Unknown]
  - Breast tenderness [Unknown]
  - Arthralgia [Unknown]

NARRATIVE: CASE EVENT DATE: 201701
